FAERS Safety Report 21034922 (Version 1)
Quarter: 2022Q3

REPORT INFORMATION
  Report Type: Spontaneous
  Country: US (occurrence: US)
  Receive Date: 20220701
  Receipt Date: 20220701
  Transmission Date: 20221027
  Serious: No
  Sender: FDA-Public Use
  Company Number: US-BIOGEN-2020BI00835434

PATIENT
  Sex: Female

DRUGS (15)
  1. TECFIDERA [Suspect]
     Active Substance: DIMETHYL FUMARATE
     Indication: Multiple sclerosis
     Route: 050
     Dates: start: 20170801
  2. AMOXICILLIN [Concomitant]
     Active Substance: AMOXICILLIN
     Route: 050
  3. UMECLIDINIUM BROMIDE\VILANTEROL TRIFENATATE [Concomitant]
     Active Substance: UMECLIDINIUM BROMIDE\VILANTEROL TRIFENATATE
     Route: 050
  4. COMBIVENT [Concomitant]
     Active Substance: ALBUTEROL SULFATE\IPRATROPIUM BROMIDE
     Route: 050
  5. CYMBALTA [Concomitant]
     Active Substance: DULOXETINE HYDROCHLORIDE
     Route: 050
  6. FLUTICASONE [Concomitant]
     Active Substance: FLUTICASONE
     Route: 050
  7. IBUPROFEN [Concomitant]
     Active Substance: IBUPROFEN
     Route: 050
  8. PROAIR HFA [Concomitant]
     Active Substance: ALBUTEROL SULFATE
     Route: 050
  9. SPIRIVA [Concomitant]
     Active Substance: TIOTROPIUM BROMIDE MONOHYDRATE
     Route: 050
  10. TRAZODONE [Concomitant]
     Active Substance: TRAZODONE HYDROCHLORIDE
     Route: 050
  11. CLIMARA [Concomitant]
     Active Substance: ESTRADIOL
     Route: 050
  12. LIDOCAINE [Concomitant]
     Active Substance: LIDOCAINE
     Route: 050
  13. PAXIL [Concomitant]
     Active Substance: PAROXETINE HYDROCHLORIDE
     Route: 050
  14. GABAPENTIN [Concomitant]
     Active Substance: GABAPENTIN
     Route: 050
  15. ALBUTEROL [Concomitant]
     Active Substance: ALBUTEROL
     Route: 050

REACTIONS (4)
  - Underdose [Unknown]
  - Loss of therapeutic response [Unknown]
  - Pneumonia [Not Recovered/Not Resolved]
  - Lung hyperinflation [Unknown]
